FAERS Safety Report 15301923 (Version 1)
Quarter: 2018Q3

REPORT INFORMATION
  Report Type: Spontaneous
  Country: BR (occurrence: BR)
  Receive Date: 20180821
  Receipt Date: 20180821
  Transmission Date: 20181010
  Serious: Yes (Disabling)
  Sender: FDA-Public Use
  Company Number: BR-ALLERGAN-1840644US

PATIENT
  Age: 52 Year
  Sex: Female

DRUGS (3)
  1. NEBIVOLOL HCL ? BP [Suspect]
     Active Substance: NEBIVOLOL
     Indication: CARDIAC VALVE DISEASE
     Dosage: 5 MG, QD
     Route: 065
  2. ESOMEPRAZOLE MAGNESIUM. [Concomitant]
     Active Substance: ESOMEPRAZOLE MAGNESIUM
     Indication: PRODUCT USED FOR UNKNOWN INDICATION
     Route: 065
  3. NEBIVOLOL HCL ? BP [Suspect]
     Active Substance: NEBIVOLOL
     Indication: ARRHYTHMIA

REACTIONS (5)
  - Aphasia [Recovering/Resolving]
  - Off label use [Unknown]
  - Cerebrovascular accident [Unknown]
  - Blindness [Recovering/Resolving]
  - Gait inability [Recovering/Resolving]
